FAERS Safety Report 8506356-2 (Version None)
Quarter: 2012Q3

REPORT INFORMATION
  Report Type: 
  Country: None (occurrence: None)
  Receive Date: 20120706
  Receipt Date: 20120706
  Transmission Date: 20120928
  Serious: Yes (Hospitalization)
  Sender: FDA-Public Use
  Company Number: None

PATIENT
  Age: 75 Year
  Sex: Male
  Weight: 79.3795 kg

DRUGS (1)
  1. AMANTADINE HCL [Suspect]
     Indication: GAIT DISTURBANCE
     Dosage: 300 GM DAILY PO X 1 DOSE

REACTIONS (4)
  - HALLUCINATION [None]
  - CONFUSIONAL STATE [None]
  - GAIT DISTURBANCE [None]
  - CONDITION AGGRAVATED [None]
